FAERS Safety Report 9304208 (Version 1)
Quarter: 2013Q2

REPORT INFORMATION
  Report Type: Spontaneous
  Country: DE (occurrence: DE)
  Receive Date: 20130522
  Receipt Date: 20130522
  Transmission Date: 20140414
  Serious: Yes (Hospitalization)
  Sender: FDA-Public Use
  Company Number: DE-MERCK-1303DEU011838

PATIENT
  Age: 45 Year
  Sex: Female
  Weight: 74 kg

DRUGS (3)
  1. PEGINTRON [Suspect]
     Indication: CHRONIC HEPATITIS C
     Dosage: 100 MICROGRAM, QW
     Route: 058
     Dates: start: 20120412, end: 201210
  2. REBETOL [Suspect]
     Indication: HEPATITIS C
     Dosage: 1-0-2, BID, 600 MG DAILY
     Dates: start: 20120412, end: 201210
  3. VICTRELIS [Suspect]
     Indication: HEPATITIS C
     Dosage: 4-4-4, TID
     Dates: start: 20120510, end: 201210

REACTIONS (3)
  - Mood swings [Unknown]
  - Hallucination [Unknown]
  - Mental disorder [Unknown]
